FAERS Safety Report 16542141 (Version 7)
Quarter: 2020Q3

REPORT INFORMATION
  Report Type: Report from Study
  Country: US (occurrence: US)
  Receive Date: 20190708
  Receipt Date: 20200928
  Transmission Date: 20201102
  Serious: Yes (Other)
  Sender: FDA-Public Use
  Company Number: PHHY2019US153443

PATIENT
  Sex: Male

DRUGS (5)
  1. KYMRIAH [Suspect]
     Active Substance: TISAGENLECLEUCEL
     Indication: B-CELL TYPE ACUTE LEUKAEMIA
     Dosage: 1.7E6 CAR?POSITIVE VIABLE T CELLS/KG BODY WEIGHT ONCE/SINGLE
     Route: 041
     Dates: start: 2018
  2. CYCLOPHOSPHAMIDE. [Concomitant]
     Active Substance: CYCLOPHOSPHAMIDE
     Indication: CHEMOTHERAPY
     Route: 065
  3. CYTARABINE. [Concomitant]
     Active Substance: CYTARABINE
     Indication: CHEMOTHERAPY
     Route: 065
  4. FLUDARABINE [Concomitant]
     Active Substance: FLUDARABINE PHOSPHATE
     Indication: CHEMOTHERAPY
     Route: 065
  5. HYDROCORTISONE. [Concomitant]
     Active Substance: HYDROCORTISONE
     Indication: CHEMOTHERAPY
     Route: 065

REACTIONS (14)
  - Cytomegalovirus infection [Unknown]
  - Cytopenia [Unknown]
  - Platelet count decreased [Recovering/Resolving]
  - Myelodysplastic syndrome [Unknown]
  - Second primary malignancy [Unknown]
  - Neutrophil count decreased [Unknown]
  - Thrombocytopenia [Recovered/Resolved]
  - Lymphocyte count decreased [Unknown]
  - Treatment failure [Unknown]
  - Haemoglobin decreased [Unknown]
  - Neutropenia [Recovering/Resolving]
  - Haematocrit decreased [Unknown]
  - Out of specification test results [Unknown]
  - White blood cell count decreased [Unknown]
